FAERS Safety Report 7788922-5 (Version None)
Quarter: 2011Q3

REPORT INFORMATION
  Report Type: 
  Country: None (occurrence: None)
  Receive Date: 20110930
  Receipt Date: 20110923
  Transmission Date: 20111222
  Serious: Yes (Death, Hospitalization)
  Sender: FDA-Public Use
  Company Number: FR-CELGENEUS-056-50794-11083179

PATIENT
  Sex: Female

DRUGS (13)
  1. VIDAZA [Suspect]
     Dosage: 50 MILLIGRAM/SQ. METER
     Route: 041
     Dates: start: 20110502, end: 20110505
  2. FUROSEMIDE [Concomitant]
     Route: 065
  3. ASPIRIN [Concomitant]
     Route: 065
  4. VIDAZA [Suspect]
     Dosage: 75 MILLIGRAM/SQ. METER
     Route: 041
     Dates: start: 20110404, end: 20110408
  5. STABLON [Concomitant]
     Route: 065
  6. VIDAZA [Suspect]
     Dosage: 50 MILLIGRAM
     Route: 041
     Dates: start: 20110704, end: 20110708
  7. REVLIMID [Suspect]
     Dosage: 5 MILLIGRAM
     Route: 048
     Dates: start: 20110404
  8. REVLIMID [Suspect]
     Dosage: 5 MILLIGRAM
     Route: 048
     Dates: start: 20110704, end: 20110724
  9. SPIRONOLACTONE [Concomitant]
     Route: 065
  10. REVLIMID [Suspect]
     Dosage: 5 MILLIGRAM
     Route: 048
     Dates: start: 20110502
  11. DILTIAZEM HCL [Concomitant]
     Route: 065
  12. PREVISCAN [Concomitant]
     Route: 065
  13. ALPRAZOLAM [Concomitant]
     Route: 065

REACTIONS (2)
  - LUNG INFECTION [None]
  - CARDIAC ARREST [None]
